FAERS Safety Report 5045943-3 (Version None)
Quarter: 2006Q2

REPORT INFORMATION
  Report Type: 
  Country: None (occurrence: None)
  Receive Date: 20060601
  Receipt Date: 20060316
  Transmission Date: 20061013
  Serious: No
  Sender: FDA-Public Use
  Company Number: 2006PV010371

PATIENT
  Age: 48 Year
  Sex: Female
  Weight: 108.8633 kg

DRUGS (3)
  1. BYETTA [Suspect]
     Indication: DIABETES MELLITUS NON-INSULIN-DEPENDENT
     Dosage: 5 MCG;BID;SC
     Route: 058
     Dates: start: 20060301
  2. LANTUS [Concomitant]
  3. HUMALOG [Concomitant]

REACTIONS (9)
  - ABDOMINAL PAIN UPPER [None]
  - BLOOD GLUCOSE DECREASED [None]
  - DIZZINESS [None]
  - DRUG EFFECT DECREASED [None]
  - EYE INFECTION BACTERIAL [None]
  - EYE INFECTION VIRAL [None]
  - LACRIMATION INCREASED [None]
  - NAUSEA [None]
  - RHINORRHOEA [None]
